FAERS Safety Report 9550557 (Version 1)
Quarter: 2013Q3

REPORT INFORMATION
  Report Type: Spontaneous
  Country: US (occurrence: US)
  Receive Date: 20130924
  Receipt Date: 20130924
  Transmission Date: 20140515
  Serious: No
  Sender: FDA-Public Use
  Company Number: US-SANOFI-AVENTIS-2013SA033937

PATIENT
  Age: 53 Year
  Sex: Female

DRUGS (2)
  1. AUBAGIO [Suspect]
     Indication: MULTIPLE SCLEROSIS
     Route: 048
     Dates: start: 20130311
  2. AUBAGIO [Suspect]
     Indication: MULTIPLE SCLEROSIS

REACTIONS (8)
  - Limb discomfort [Unknown]
  - Cardiovascular disorder [Unknown]
  - Nausea [Unknown]
  - Paraesthesia [Unknown]
  - Abdominal pain upper [Unknown]
  - Diarrhoea [Unknown]
  - Back pain [Unknown]
  - Musculoskeletal pain [Unknown]
